FAERS Safety Report 8934878 (Version 2)
Quarter: 2012Q4

REPORT INFORMATION
  Report Type: 
  Country: ID (occurrence: ID)
  Receive Date: 20121129
  Receipt Date: 20121213
  Transmission Date: 20130627
  Serious: Yes (Hospitalization, Other)
  Sender: FDA-Public Use
  Company Number: ID-ABBOTT-12P-079-1013764-00

PATIENT
  Age: 10 Year
  Sex: Male

DRUGS (2)
  1. DEPAKENE [Suspect]
     Indication: EPILEPSY
     Dosage: to be tapered off every two weeks
     Route: 048
  2. DEPAKOTE [Suspect]
     Indication: PRODUCT USED FOR UNKNOWN INDICATION

REACTIONS (8)
  - Hyperglycaemia [Unknown]
  - Thrombocytopenia [Unknown]
  - Dengue fever [Unknown]
  - Hyperphagia [Unknown]
  - Polydipsia [Unknown]
  - Polyuria [Unknown]
  - Convulsion [Unknown]
  - Epistaxis [Unknown]
